FAERS Safety Report 6075572-4 (Version None)
Quarter: 2009Q1

REPORT INFORMATION
  Report Type: 
  Country: None (occurrence: None)
  Receive Date: 20090121
  Receipt Date: 20080417
  Transmission Date: 20090719
  Serious: Yes (Other)
  Sender: FDA-Public Use
  Company Number: HQWYE780129JUN04

PATIENT
  Age: 54 Year
  Sex: Female

DRUGS (1)
  1. PREMPRO [Suspect]

REACTIONS (16)
  - ABDOMINAL PAIN [None]
  - ALOPECIA [None]
  - BLOOD GLUCOSE FLUCTUATION [None]
  - BREAST CANCER [None]
  - BREAST ENLARGEMENT [None]
  - BREAST TENDERNESS [None]
  - DEPRESSION [None]
  - DIZZINESS [None]
  - FUNGAL INFECTION [None]
  - GALLBLADDER DISORDER [None]
  - METRORRHAGIA [None]
  - MIGRAINE [None]
  - MUSCLE SPASMS [None]
  - NAUSEA [None]
  - VOMITING [None]
  - WEIGHT FLUCTUATION [None]
